FAERS Safety Report 7711613-3 (Version None)
Quarter: 2011Q3

REPORT INFORMATION
  Report Type: 
  Country: None (occurrence: None)
  Receive Date: 20110826
  Receipt Date: 20110613
  Transmission Date: 20111222
  Serious: No
  Sender: FDA-Public Use
  Company Number: US-BRISTOL-MYERS SQUIBB COMPANY-15778079

PATIENT
  Age: 55 Year
  Sex: Female

DRUGS (2)
  1. ONGLYZA [Suspect]
     Indication: DIABETES MELLITUS
  2. PRAVASTATIN SODIUM [Suspect]

REACTIONS (1)
  - RASH [None]
